FAERS Safety Report 6272003-6 (Version None)
Quarter: 2009Q3

REPORT INFORMATION
  Report Type: 
  Country: None (occurrence: None)
  Receive Date: 20090717
  Receipt Date: 20090707
  Transmission Date: 20100115
  Serious: Yes (Other)
  Sender: FDA-Public Use
  Company Number: IT-AVENTIS-200916772GDDC

PATIENT
  Age: 59 Year
  Sex: Female

DRUGS (6)
  1. TAXOTERE [Suspect]
     Route: 041
     Dates: start: 20090609, end: 20090701
  2. ALOXI [Concomitant]
     Indication: PREMEDICATION
     Route: 042
     Dates: start: 20090701, end: 20090701
  3. ANTRA                              /00661201/ [Concomitant]
     Indication: PREMEDICATION
     Route: 048
     Dates: start: 20090701, end: 20090701
  4. ORAMORPH SR [Concomitant]
     Route: 048
  5. DURAGESIC-100 [Concomitant]
  6. DEXAMETHASONE SODIUM [Concomitant]
     Indication: PREMEDICATION
     Route: 042
     Dates: start: 20090701, end: 20090701

REACTIONS (4)
  - CYANOSIS [None]
  - ERYTHEMA [None]
  - RESPIRATORY FAILURE [None]
  - SPEECH DISORDER [None]
